FAERS Safety Report 7346968-5 (Version None)
Quarter: 2011Q1

REPORT INFORMATION
  Report Type: 
  Country: None (occurrence: None)
  Receive Date: 20110311
  Receipt Date: 20110225
  Transmission Date: 20110831
  Serious: Yes (Other)
  Sender: FDA-Public Use
  Company Number: PHHY2011US16216

PATIENT
  Sex: Female

DRUGS (6)
  1. LIVALO KOWA [Concomitant]
  2. VITAMIN D [Concomitant]
  3. LOVAZA [Concomitant]
  4. AMTURNIDE [Suspect]
     Dosage: 150/5/12.5 MG DAILY
  5. XANAX [Concomitant]
  6. UNITHROID [Concomitant]

REACTIONS (5)
  - VISUAL IMPAIRMENT [None]
  - VISUAL FIELD DEFECT [None]
  - GAIT DISTURBANCE [None]
  - LIMB DISCOMFORT [None]
  - DIZZINESS [None]
